FAERS Safety Report 7471027-0 (Version None)
Quarter: 2011Q2

REPORT INFORMATION
  Report Type: 
  Country: None (occurrence: None)
  Receive Date: 20110510
  Receipt Date: 20110505
  Transmission Date: 20111010
  Serious: No
  Sender: FDA-Public Use
  Company Number: US-PFIZER INC-2011097691

PATIENT
  Sex: Female

DRUGS (3)
  1. NEURONTIN [Suspect]
     Indication: ARTHRITIS
     Dosage: 300 MG, 2X/DAY
  2. MOTRIN [Suspect]
     Dosage: UNK
     Dates: start: 20110501
  3. NEURONTIN [Suspect]
     Indication: FIBROMYALGIA

REACTIONS (3)
  - BACK PAIN [None]
  - FEELING ABNORMAL [None]
  - EUPHORIC MOOD [None]
